FAERS Safety Report 6892590-4 (Version None)
Quarter: 2010Q3

REPORT INFORMATION
  Report Type: 
  Country: None (occurrence: None)
  Receive Date: 20100731
  Receipt Date: 20080714
  Transmission Date: 20110219
  Serious: No
  Sender: FDA-Public Use
  Company Number: US-PFIZER INC-2008057585

PATIENT
  Sex: Male
  Weight: 97.7 kg

DRUGS (12)
  1. NORVASC [Suspect]
     Route: 048
     Dates: start: 20000101
  2. AMLODIPINE [Suspect]
     Route: 048
     Dates: start: 20080601
  3. PLAVIX [Concomitant]
  4. VALSARTAN [Concomitant]
  5. GLIPIZIDE [Concomitant]
  6. FUROSEMIDE [Concomitant]
  7. POTASSIUM [Concomitant]
  8. ACETYLSALICYLIC ACID SRT [Concomitant]
  9. GLUCOSAMINE [Concomitant]
  10. CHONDROITIN [Concomitant]
  11. FOLIC ACID [Concomitant]
  12. ASCORBIC ACID [Concomitant]

REACTIONS (2)
  - HEADACHE [None]
  - JOINT SWELLING [None]
